FAERS Safety Report 5318150-4 (Version None)
Quarter: 2007Q2

REPORT INFORMATION
  Report Type: 
  Country: None (occurrence: None)
  Receive Date: 20070507
  Receipt Date: 20070424
  Transmission Date: 20071010
  Serious: Yes (Hospitalization, Other)
  Sender: FDA-Public Use
  Company Number: JP-ROCHE-490417

PATIENT
  Age: 54 Year
  Sex: Male
  Weight: 67 kg

DRUGS (8)
  1. TAMIFLU [Suspect]
     Route: 048
     Dates: start: 20070323, end: 20070324
  2. HORIZON [Suspect]
     Indication: DRUG USE FOR UNKNOWN INDICATION
     Route: 042
  3. CALONAL [Suspect]
     Indication: DRUG USE FOR UNKNOWN INDICATION
     Route: 048
  4. THYRADIN S [Concomitant]
     Route: 048
  5. ADALAT [Concomitant]
     Dosage: REPORTED AS ADALAT-CR
     Route: 048
  6. DILTIAZEM HCL [Concomitant]
     Route: 048
  7. LASIX [Concomitant]
     Route: 048
  8. ALDACTONE [Concomitant]
     Route: 048

REACTIONS (3)
  - ABNORMAL BEHAVIOUR [None]
  - DELIRIUM [None]
  - RENAL FAILURE [None]
